FAERS Safety Report 8277658-2 (Version None)
Quarter: 2012Q2

REPORT INFORMATION
  Report Type: 
  Country: None (occurrence: None)
  Receive Date: 20120412
  Receipt Date: 20120402
  Transmission Date: 20120825
  Serious: Yes (Hospitalization)
  Sender: FDA-Public Use
  Company Number: DE-TEVA-332487GER

PATIENT
  Age: 48 Year
  Sex: Female

DRUGS (3)
  1. LORAZEPAM [Interacting]
     Indication: SCHIZOPHRENIA, CATATONIC TYPE
     Route: 048
  2. HALOPERIDOL [Suspect]
     Indication: SCHIZOPHRENIA, CATATONIC TYPE
     Route: 065
  3. OLANZAPINE [Interacting]
     Indication: SCHIZOPHRENIA, CATATONIC TYPE
     Route: 065

REACTIONS (3)
  - DRUG INTERACTION [None]
  - HYPOTHERMIA [None]
  - PARKINSONISM [None]
